FAERS Safety Report 8812978 (Version 1)
Quarter: 2012Q4

REPORT INFORMATION
  Report Type: 
  Country: US (occurrence: US)
  Receive Date: 20120927
  Receipt Date: 20120927
  Transmission Date: 20130627
  Serious: Yes (Other)
  Sender: FDA-Public Use
  Company Number: US-AMGEN-USASP2012046795

PATIENT
  Age: 72 Year
  Sex: Male

DRUGS (2)
  1. XGEVA [Suspect]
     Indication: LUNG CARCINOMA CELL TYPE UNSPECIFIED STAGE IV
     Dosage: UNK
     Dates: start: 201207
  2. XGEVA [Suspect]
     Indication: METASTASES TO BONE

REACTIONS (3)
  - Hypocalcaemia [Unknown]
  - Tremor [Unknown]
  - Creatinine renal clearance decreased [Unknown]
